FAERS Safety Report 12106406 (Version 2)
Quarter: 2016Q1

REPORT INFORMATION
  Report Type: Spontaneous
  Country: US (occurrence: US)
  Receive Date: 20160223
  Receipt Date: 20160304
  Transmission Date: 20160526
  Serious: Yes (Hospitalization)
  Sender: FDA-Public Use
  Company Number: US-ACTELION-A-US2016-130375

PATIENT
  Age: 35 Year
  Sex: Female

DRUGS (2)
  1. OPSUMIT [Suspect]
     Active Substance: MACITENTAN
     Indication: PULMONARY HYPERTENSION
     Dosage: 10 MG, QD
     Route: 048
     Dates: start: 20151215
  2. ADCIRCA [Suspect]
     Active Substance: TADALAFIL
     Indication: PULMONARY HYPERTENSION
     Dosage: UNK
     Route: 065

REACTIONS (7)
  - Oropharyngeal pain [Unknown]
  - Cyst [Unknown]
  - Dysphagia [Unknown]
  - Pharyngeal oedema [Unknown]
  - Cellulitis [Unknown]
  - Hypersensitivity [Unknown]
  - Dyspnoea [Unknown]
